FAERS Safety Report 4524737-9 (Version None)
Quarter: 2004Q4

REPORT INFORMATION
  Report Type: 
  Country: None (occurrence: None)
  Receive Date: 20041209
  Receipt Date: 20041202
  Transmission Date: 20050328
  Serious: Yes (Life-Threatening, Hospitalization)
  Sender: FDA-Public Use
  Company Number: K200401844

PATIENT
  Age: 66 Year
  Sex: Male

DRUGS (8)
  1. KEMADRIN (PROCYCLIDINE) TABLET, 15MG [Suspect]
     Indication: PARKINSON'S DISEASE
     Dosage: 15 MG, QD, ORAL
     Route: 048
  2. ARICEPT [Suspect]
     Indication: DEMENTIA ALZHEIMER'S TYPE
     Dosage: 5 MG, QD, ORAL
     Route: 048
     Dates: start: 20040108, end: 20040115
  3. BESITRAN (SERTRALINEHYDROCHLORIDE) TABLET, 300 MG [Suspect]
     Indication: DEPRESSION
     Dosage: 300 MG, QD, ORAL
     Route: 048
  4. CLONAZEPAM [Concomitant]
  5. METOPROLOL TARTRATE [Concomitant]
  6. APROVEL (IRBESARTAN) [Concomitant]
  7. LORAMET (LORMETAZEPAM) [Concomitant]
  8. SINTROM (NICOUMALONE) [Concomitant]

REACTIONS (12)
  - BLOOD CHLORIDE DECREASED [None]
  - BLOOD GLUCOSE INCREASED [None]
  - BLOOD SODIUM INCREASED [None]
  - BLOOD UREA INCREASED [None]
  - CHOLINERGIC SYNDROME [None]
  - DEHYDRATION [None]
  - LEUKOCYTOSIS [None]
  - LIVER DISORDER [None]
  - NEUROLEPTIC MALIGNANT SYNDROME [None]
  - RESPIRATORY FAILURE [None]
  - RESPIRATORY TRACT INFECTION [None]
  - RHABDOMYOLYSIS [None]
